FAERS Safety Report 7573943-8 (Version None)
Quarter: 2011Q2

REPORT INFORMATION
  Report Type: 
  Country: None (occurrence: None)
  Receive Date: 20110622
  Receipt Date: 20110610
  Transmission Date: 20111010
  Serious: Yes (Hospitalization, Other)
  Sender: FDA-Public Use
  Company Number: 2011SP027237

PATIENT
  Age: 43 Year
  Sex: Male

DRUGS (2)
  1. PEG-INTRON [Suspect]
     Indication: HEPATITIS C
     Dates: end: 20000101
  2. INTERFERON [Concomitant]

REACTIONS (5)
  - POLYP [None]
  - HEPATITIS C [None]
  - DISEASE RECURRENCE [None]
  - FATIGUE [None]
  - CHOLECYSTECTOMY [None]
